FAERS Safety Report 6012436-6 (Version None)
Quarter: 2008Q4

REPORT INFORMATION
  Report Type: 
  Country: None (occurrence: None)
  Receive Date: 20081218
  Receipt Date: 20081210
  Transmission Date: 20090506
  Serious: Yes (Death, Hospitalization)
  Sender: FDA-Public Use
  Company Number: ES-ELI_LILLY_AND_COMPANY-ES200812002932

PATIENT
  Age: 81 Year
  Sex: Female

DRUGS (11)
  1. FORTEO [Suspect]
     Indication: OSTEOPOROSIS
     Dosage: 20 UG, UNKNOWN
     Route: 058
     Dates: start: 20070601
  2. CYMBALTA [Suspect]
     Indication: DIABETIC NEUROPATHY
     Dosage: UNK, UNKNOWN
     Route: 048
     Dates: start: 20081101
  3. SEROQUEL [Concomitant]
     Dosage: UNK, UNKNOWN
  4. DEPAKENE [Concomitant]
     Dosage: UNK, UNKNOWN
  5. ASPIRIN [Concomitant]
     Dosage: UNK, UNKNOWN
  6. SUTRIL [Concomitant]
     Dosage: UNK, UNKNOWN
  7. SEGURIL [Concomitant]
     Dosage: UNK, UNKNOWN
  8. OMEPRAZOLE [Concomitant]
     Dosage: UNK, UNKNOWN
  9. INSULIN [Concomitant]
     Dosage: UNK, UNKNOWN
  10. CLAVERSAL [Concomitant]
     Dosage: UNK, UNKNOWN
  11. TANAGEL [Concomitant]
     Dosage: UNK, UNKNOWN

REACTIONS (3)
  - DEATH [None]
  - HYPOKINESIA [None]
  - PYREXIA [None]
